FAERS Safety Report 5468523-4 (Version None)
Quarter: 2007Q3

REPORT INFORMATION
  Report Type: 
  Country: None (occurrence: None)
  Receive Date: 20070926
  Receipt Date: 20070816
  Transmission Date: 20080115
  Serious: No
  Sender: FDA-Public Use
  Company Number: US-BRISTOL-MYERS SQUIBB COMPANY-13879572

PATIENT
  Age: 63 Year
  Sex: Female
  Weight: 72 kg

DRUGS (26)
  1. ORENCIA [Suspect]
     Indication: RHEUMATOID ARTHRITIS
     Dates: start: 20070725
  2. FISH OIL [Concomitant]
  3. MULTI-VITAMIN [Concomitant]
  4. CALCIUM + VITAMIN D [Concomitant]
  5. NEXIUM [Concomitant]
  6. GLYBURIDE [Concomitant]
  7. FOLIC ACID [Concomitant]
  8. METHOTREXATE [Concomitant]
  9. INDAPAMIDE [Concomitant]
  10. LEVOTHYROXINE SODIUM [Concomitant]
  11. DARVOCET [Concomitant]
  12. FLONASE [Concomitant]
  13. SULFASALAZINE [Concomitant]
  14. ASPIRIN [Concomitant]
  15. NORVASC [Concomitant]
  16. POTASSIUM CHLORIDE [Concomitant]
  17. HUMULIN N [Concomitant]
  18. WELLBUTRIN [Concomitant]
  19. FERROUS SULFATE TAB [Concomitant]
  20. AVANDIA [Concomitant]
  21. LISINOPRIL [Concomitant]
  22. SIMVASTATIN [Concomitant]
  23. SERTRALINE [Concomitant]
     Dates: start: 20070701
  24. PLAQUENIL [Concomitant]
  25. NEURONTIN [Concomitant]
  26. EFFEXOR [Concomitant]
     Dosage: TITRATED DOWN IN JUL-2007
     Dates: end: 20070701

REACTIONS (4)
  - BODY TEMPERATURE FLUCTUATION [None]
  - MUSCULOSKELETAL CHEST PAIN [None]
  - PAIN IN EXTREMITY [None]
  - PELVIC PAIN [None]
